FAERS Safety Report 9602760 (Version 1)
Quarter: 2013Q4

REPORT INFORMATION
  Report Type: Report from Study
  Country: JP (occurrence: JP)
  Receive Date: 20131007
  Receipt Date: 20131007
  Transmission Date: 20140711
  Serious: Yes (Hospitalization)
  Sender: FDA-Public Use
  Company Number: PHHY2013JP110897

PATIENT
  Age: 43 Year
  Sex: Female
  Weight: 55 kg

DRUGS (8)
  1. FTY 720 [Suspect]
     Indication: MULTIPLE SCLEROSIS
     Dosage: 0.5 MG, QD
     Route: 048
     Dates: start: 20120813
  2. DIHYDERGOT [Concomitant]
     Dosage: 2 MG, UNK
     Route: 048
  3. METHYCOBAL [Concomitant]
     Dosage: 1.5 MG, UNK
     Route: 048
  4. ALINAMIN F [Concomitant]
     Dosage: 75 MG, UNK
     Route: 048
  5. URSO [Concomitant]
     Dosage: 300 MG, UNK
     Route: 048
  6. EPL//POLYENE PHOSPHATIDYLCHOLINE [Concomitant]
     Dosage: 1.5 G, UNK
     Route: 048
  7. LOXONIN [Concomitant]
     Dosage: 60 MG, UNK
     Route: 048
  8. UBRETID [Concomitant]
     Dosage: 5 MG, UNK
     Route: 048
     Dates: start: 20120912

REACTIONS (7)
  - Accident [Recovered/Resolved]
  - Injury [Recovered/Resolved]
  - Hand fracture [Recovered/Resolved]
  - Radius fracture [Recovered/Resolved]
  - Tibia fracture [Recovered/Resolved]
  - Fibula fracture [Recovered/Resolved]
  - Somnolence [Unknown]
